FAERS Safety Report 4645741-6 (Version None)
Quarter: 2005Q2

REPORT INFORMATION
  Report Type: 
  Country: None (occurrence: None)
  Receive Date: 20050425
  Receipt Date: 20050425
  Transmission Date: 20051028
  Serious: Yes (Hospitalization, Other)
  Sender: FDA-Public Use
  Company Number: None

PATIENT
  Sex: Male
  Weight: 74.55 kg

DRUGS (3)
  1. FLUOROURACIL [Suspect]
     Dosage: 650 MG/M2^2 CIV X 96 HR
     Route: 042
     Dates: start: 20050314, end: 20050414
  2. CISPLATIN [Suspect]
     Dosage: 15 MG/M2^2X5 DAYS
     Dates: start: 20050411, end: 20050413
  3. PACLITAXEL [Suspect]
     Dosage: 200 MG/M^2 X 1 DAY
     Dates: start: 20050411, end: 20050411

REACTIONS (1)
  - MYOCARDIAL INFARCTION [None]
